FAERS Safety Report 9398768 (Version 1)
Quarter: 2013Q3

REPORT INFORMATION
  Report Type: Spontaneous
  Country: US (occurrence: US)
  Receive Date: 20130712
  Receipt Date: 20130712
  Transmission Date: 20140515
  Serious: Yes (Other)
  Sender: FDA-Public Use
  Company Number: CHPA2013US010892

PATIENT
  Age: 83 Year
  Sex: Female

DRUGS (3)
  1. MAALOX UNKNOWN [Suspect]
     Indication: ULCER
     Dosage: 3 TSP, QHS
     Route: 048
     Dates: start: 1988
  2. MAALOX UNKNOWN [Suspect]
     Indication: CONSTIPATION
  3. PREDNISONE [Concomitant]
     Indication: ARTHRITIS
     Dosage: 10 MG, QD

REACTIONS (4)
  - Breast cancer [Recovered/Resolved]
  - Off label use [Unknown]
  - Therapeutic response unexpected [Unknown]
  - Incorrect drug administration duration [Unknown]
